FAERS Safety Report 6714258-7 (Version None)
Quarter: 2010Q2

REPORT INFORMATION
  Report Type: 
  Country: None (occurrence: None)
  Receive Date: 20100506
  Receipt Date: 20090611
  Transmission Date: 20101027
  Serious: No
  Sender: FDA-Public Use
  Company Number: US-BAUSCH-2009BL002930

PATIENT
  Age: 62 Year
  Sex: Female

DRUGS (2)
  1. LOTEMAX [Suspect]
     Indication: EYE INFLAMMATION
     Route: 047
     Dates: start: 20090523, end: 20090529
  2. CLARITIN /USA/ [Concomitant]

REACTIONS (3)
  - DRUG HYPERSENSITIVITY [None]
  - VERTIGO [None]
  - VISION BLURRED [None]
